FAERS Safety Report 20786525 (Version 1)
Quarter: 2022Q2

REPORT INFORMATION
  Report Type: Spontaneous
  Country: IR (occurrence: IR)
  Receive Date: 20220505
  Receipt Date: 20220505
  Transmission Date: 20220721
  Serious: Yes (Hospitalization)
  Sender: FDA-Public Use
  Company Number: IR-LUPIN PHARMACEUTICALS INC.-2022-06439

PATIENT
  Age: 28 Year
  Sex: Female

DRUGS (12)
  1. SULFAMETHOXAZOLE AND TRIMETHOPRIM [Suspect]
     Active Substance: SULFAMETHOXAZOLE\TRIMETHOPRIM
     Indication: Pneumocystis jirovecii pneumonia
     Dosage: UNK
     Route: 065
     Dates: start: 2021, end: 2021
  2. AZATHIOPRINE [Concomitant]
     Active Substance: AZATHIOPRINE
     Indication: Colitis ulcerative
     Dosage: UNK
     Route: 065
  3. MESALAMINE [Concomitant]
     Active Substance: MESALAMINE
     Indication: Colitis ulcerative
     Dosage: UNK
     Route: 065
  4. PREDNISOLONE [Concomitant]
     Active Substance: PREDNISOLONE
     Indication: Colitis ulcerative
     Dosage: UNK
     Route: 065
  5. REMDESIVIR [Concomitant]
     Active Substance: REMDESIVIR
     Indication: COVID-19 pneumonia
     Dosage: 200 MG (FOR FIRST DAY)
     Route: 065
  6. REMDESIVIR [Concomitant]
     Active Substance: REMDESIVIR
     Dosage: 100 MG, (FOR THE FOLLOWING 4 DAYS0
     Route: 065
  7. DEXAMETHASONE [Concomitant]
     Active Substance: DEXAMETHASONE
     Indication: COVID-19 pneumonia
     Dosage: 8 MG, QD
     Route: 065
  8. HUMAN IMMUNOGLOBULIN G [Concomitant]
     Active Substance: HUMAN IMMUNOGLOBULIN G
     Indication: Combined immunodeficiency
     Dosage: UNK
     Route: 065
  9. VORICONAZOLE [Concomitant]
     Active Substance: VORICONAZOLE
     Indication: Fungal infection
     Dosage: 6 MILLIGRAM/KILOGRAM, BID (FOR FIRST DAY)
     Route: 065
     Dates: start: 2021, end: 2021
  10. VORICONAZOLE [Concomitant]
     Active Substance: VORICONAZOLE
     Dosage: 4 MILLIGRAM/KILOGRAM (FOR THE FOLLOWING 7 DAYS)
     Route: 065
     Dates: start: 2021, end: 2021
  11. GANCICLOVIR [Concomitant]
     Active Substance: GANCICLOVIR
     Indication: Pneumonia cytomegaloviral
     Dosage: 5 MILLIGRAM/KILOGRAM (FOR FIRST DAY)
     Route: 065
     Dates: start: 2021
  12. GANCICLOVIR [Concomitant]
     Active Substance: GANCICLOVIR
     Dosage: 5 MILLIGRAM/KILOGRAM (FOR THE FOLLOWING 13 DAYS)
     Route: 065
     Dates: start: 2021

REACTIONS (1)
  - Hypersensitivity [Unknown]

NARRATIVE: CASE EVENT DATE: 20210101
